FAERS Safety Report 7155912-5 (Version None)
Quarter: 2010Q4

REPORT INFORMATION
  Report Type: 
  Country: None (occurrence: None)
  Receive Date: 20101214
  Receipt Date: 20101129
  Transmission Date: 20110411
  Serious: Yes (Other)
  Sender: FDA-Public Use
  Company Number: PHHY2009JP26945

PATIENT
  Age: 56 Year
  Sex: Female

DRUGS (2)
  1. ZOMETA [Suspect]
     Indication: METASTASES TO BONE
     Dosage: UNK
     Route: 042
     Dates: start: 20061101
  2. AREDIA [Suspect]
     Indication: METASTASES TO BONE
     Dosage: UNK
     Route: 042
     Dates: start: 20060201, end: 20060101

REACTIONS (5)
  - BONE DISORDER [None]
  - GINGIVAL SWELLING [None]
  - OSTEONECROSIS OF JAW [None]
  - PAIN [None]
  - PATHOLOGICAL FRACTURE [None]
